FAERS Safety Report 8387460-9 (Version None)
Quarter: 2012Q2

REPORT INFORMATION
  Report Type: 
  Country: None (occurrence: None)
  Receive Date: 20120525
  Receipt Date: 20120521
  Transmission Date: 20120825
  Serious: Yes (Other)
  Sender: FDA-Public Use
  Company Number: PHHY2012US044483

PATIENT

DRUGS (14)
  1. CLOPIDOGREL [Suspect]
     Dosage: MATERNAL DOSE 75 MG
     Route: 064
  2. HYDRALAZINE HCL [Suspect]
     Dosage: MATERNAL DOSE 25 MG/DAY
  3. MORPHINE [Suspect]
     Route: 064
  4. CARVEDILOL [Suspect]
     Dosage: MATERNAL DOSE 3.125 MG, BID
  5. METOPROLOL TARTRATE [Suspect]
     Dosage: MATERNAL DOSE 1 MG
     Route: 064
  6. HEPARIN [Suspect]
     Route: 064
  7. CARVEDILOL [Suspect]
     Dosage: MATERNAL DOSE 12.5 MG
     Route: 064
  8. VITAMIN TAB [Suspect]
     Route: 064
  9. SIMVASTATIN [Suspect]
     Dosage: MATERNAL DOSE 20 MG
     Route: 064
  10. HYDRALAZINE HCL [Suspect]
     Dosage: MATERNAL DOSE 1 MG
     Route: 064
  11. ASPIRIN [Suspect]
     Dosage: MATERNAL DOSE 325 MG
     Route: 064
  12. CARVEDILOL [Suspect]
     Dosage: MATERNAL DOSE 6.25 MG, BID
  13. NITRATES [Suspect]
     Route: 064
  14. FERROUS SULFATE TAB [Suspect]
     Dosage: MATERNAL DOSE 325 MG
     Route: 064

REACTIONS (4)
  - FOETAL EXPOSURE DURING PREGNANCY [None]
  - PREMATURE BABY [None]
  - MATERNAL DRUGS AFFECTING FOETUS [None]
  - CAESAREAN SECTION [None]
